FAERS Safety Report 20443190 (Version 1)
Quarter: 2022Q1

REPORT INFORMATION
  Report Type: Spontaneous
  Country: US (occurrence: None)
  Receive Date: 20220207
  Receipt Date: 20220207
  Transmission Date: 20220423
  Serious: Yes (Death)
  Sender: FDA-Public Use
  Company Number: None

PATIENT
  Sex: Female
  Weight: 77.11 kg

DRUGS (18)
  1. IMATINIB MESYLATE [Suspect]
     Active Substance: IMATINIB MESYLATE
     Indication: Philadelphia positive chronic myeloid leukaemia
     Dosage: FREQUENCY : DAILY;?
     Route: 048
  2. ALENDRONATE [Concomitant]
     Active Substance: ALENDRONATE SODIUM
  3. BIOTIN [Concomitant]
     Active Substance: BIOTIN
  4. BUMETANIDE [Concomitant]
     Active Substance: BUMETANIDE
  5. FISH OIL [Concomitant]
     Active Substance: FISH OIL
  6. GABAPENTIN [Concomitant]
     Active Substance: GABAPENTIN
  7. GEMFIBROZIL [Concomitant]
     Active Substance: GEMFIBROZIL
  8. LEGATRIN [Concomitant]
     Active Substance: ACETAMINOPHEN\DIPHENHYDRAMINE
  9. LEVOTHYROXINE [Concomitant]
     Active Substance: LEVOTHYROXINE
  10. LOSARTAN [Concomitant]
     Active Substance: LOSARTAN
  11. MEMANTINE [Concomitant]
     Active Substance: MEMANTINE
  12. POTASSIUM CHLORDE ER [Concomitant]
  13. VITAMINS [Concomitant]
     Active Substance: VITAMINS
  14. DIETARY SUPPLEMENT\RESVERATROL [Concomitant]
     Active Substance: DIETARY SUPPLEMENT\RESVERATROL
  15. STOOL SOFTNER [Concomitant]
  16. TRAZODONE [Concomitant]
     Active Substance: TRAZODONE HYDROCHLORIDE
  17. HERBALS\TURMERIC [Concomitant]
     Active Substance: HERBALS\TURMERIC
  18. WARFARIN [Concomitant]
     Active Substance: WARFARIN

REACTIONS (1)
  - Death [None]
